FAERS Safety Report 23963488 (Version 1)
Quarter: 2024Q2

REPORT INFORMATION
  Report Type: Spontaneous
  Country: DE (occurrence: DE)
  Receive Date: 20240611
  Receipt Date: 20240611
  Transmission Date: 20240717
  Serious: Yes (Hospitalization, Other)
  Sender: FDA-Public Use
  Company Number: DE-TEVA-VS-3207194

PATIENT
  Sex: Female

DRUGS (1)
  1. LANSOPRAZOLE [Suspect]
     Active Substance: LANSOPRAZOLE
     Route: 048

REACTIONS (6)
  - Seizure [Unknown]
  - Pain in extremity [Unknown]
  - Blood pressure decreased [Unknown]
  - Agitation [Unknown]
  - Erythema [Unknown]
  - Product storage error [Unknown]

NARRATIVE: CASE EVENT DATE: 20240602
